FAERS Safety Report 9661429 (Version 1)
Quarter: 2013Q4

REPORT INFORMATION
  Report Type: Spontaneous
  Country: US (occurrence: US)
  Receive Date: 20131031
  Receipt Date: 20131031
  Transmission Date: 20140711
  Serious: No
  Sender: FDA-Public Use
  Company Number: US-PURDUE-USA-2010-0055369

PATIENT
  Sex: Male

DRUGS (3)
  1. OXYCONTIN (NDA 22-272) [Suspect]
     Indication: PAIN
     Dosage: 160 MG, AM
     Dates: start: 20101005
  2. OXYCONTIN (NDA 22-272) [Suspect]
     Dosage: 80 MG, PM
     Dates: start: 20101005
  3. OXYCODONE HYDROCHLORIDE (SIMILAR TO NDA 22-272) [Suspect]
     Indication: PAIN
     Dosage: UNK

REACTIONS (3)
  - Pain [Unknown]
  - Inadequate analgesia [Unknown]
  - Intentional drug misuse [Unknown]
